FAERS Safety Report 15376968 (Version 1)
Quarter: 2018Q3

REPORT INFORMATION
  Report Type: Report from Study
  Country: TN (occurrence: TN)
  Receive Date: 20180913
  Receipt Date: 20180913
  Transmission Date: 20181010
  Serious: Yes (Hospitalization)
  Sender: FDA-Public Use
  Company Number: TN-EMD SERONO-9031041

PATIENT
  Sex: Female

DRUGS (1)
  1. REBIF [Suspect]
     Active Substance: INTERFERON BETA-1A
     Indication: BEHCET^S SYNDROME
     Route: 058
     Dates: start: 20170602, end: 201804

REACTIONS (2)
  - Mouth ulceration [Recovered/Resolved]
  - Drug prescribing error [Unknown]
